FAERS Safety Report 23589800 (Version 2)
Quarter: 2024Q2

REPORT INFORMATION
  Report Type: Spontaneous
  Country: CY (occurrence: CY)
  Receive Date: 20240304
  Receipt Date: 20240404
  Transmission Date: 20240716
  Serious: Yes (Life-Threatening, Hospitalization, Other)
  Sender: FDA-Public Use
  Company Number: CY-MLMSERVICE-20240215-4834821-1

PATIENT
  Age: 67 Year
  Sex: Female

DRUGS (2)
  1. OLANZAPINE [Suspect]
     Active Substance: OLANZAPINE
     Indication: Schizophrenia
     Dosage: 10 MILLIGRAM (FIRST DOSE 8 H AGO)
     Route: 065
     Dates: start: 20211017
  2. OLANZAPINE [Suspect]
     Active Substance: OLANZAPINE
     Indication: Psychotic disorder

REACTIONS (6)
  - Electrocardiogram RR interval prolonged [Unknown]
  - Electrocardiogram QT prolonged [Unknown]
  - Atrioventricular block first degree [Unknown]
  - Sinus bradycardia [Unknown]
  - Altered state of consciousness [Recovered/Resolved]
  - Hypothermia [Recovered/Resolved]
